FAERS Safety Report 10417887 (Version 7)
Quarter: 2015Q2

REPORT INFORMATION
  Report Type: Report from Study
  Country: CA (occurrence: CA)
  Receive Date: 20140829
  Receipt Date: 20150626
  Transmission Date: 20150821
  Serious: Yes (Other)
  Sender: FDA-Public Use
  Company Number: CA-UCBSA-2014005036

PATIENT
  Age: 76 Year
  Sex: Female

DRUGS (3)
  1. CERTOLIZUMAB PEGOL RA [Suspect]
     Active Substance: CERTOLIZUMAB PEGOL
     Indication: RHEUMATOID ARTHRITIS
     Dosage: 400 MG, EV 2 WEEKS(QOW)
     Route: 058
     Dates: start: 20130311, end: 20130408
  2. CERTOLIZUMAB PEGOL RA [Suspect]
     Active Substance: CERTOLIZUMAB PEGOL
     Dosage: 200 MG, EV 2 WEEKS(QOW)
     Dates: end: 20150413
  3. CERTOLIZUMAB PEGOL RA [Suspect]
     Active Substance: CERTOLIZUMAB PEGOL
     Dosage: 200 MG, EV 4 WEEKS
     Route: 058
     Dates: start: 20130506

REACTIONS (10)
  - Cough [Recovering/Resolving]
  - Dysphonia [Recovering/Resolving]
  - Arthralgia [Not Recovered/Not Resolved]
  - Dyspnoea [Not Recovered/Not Resolved]
  - Pharyngitis [Not Recovered/Not Resolved]
  - Bronchitis [Not Recovered/Not Resolved]
  - Clostridium difficile colitis [Recovering/Resolving]
  - Sinusitis [Unknown]
  - Malaise [Not Recovered/Not Resolved]
  - Dehydration [Recovering/Resolving]

NARRATIVE: CASE EVENT DATE: 20140704
